FAERS Safety Report 8309983-0 (Version None)
Quarter: 2012Q2

REPORT INFORMATION
  Report Type: 
  Country: None (occurrence: None)
  Receive Date: 20120425
  Receipt Date: 20120420
  Transmission Date: 20120825
  Serious: Yes (Death, Other)
  Sender: FDA-Public Use
  Company Number: BR-PFIZER INC-2012079256

PATIENT
  Age: 77 Year
  Sex: Male
  Weight: 63 kg

DRUGS (3)
  1. SUTENT [Suspect]
     Indication: METASTATIC RENAL CELL CARCINOMA
     Dosage: 50 MG, DAILY (CYCLE 4/2)
     Route: 048
     Dates: start: 20120312
  2. AMLODIPINE [Concomitant]
     Dosage: 10 MG, 3X/DAY
  3. SERTRALINE [Concomitant]
     Dosage: 50 MG, 1X/DAY

REACTIONS (18)
  - EYE ALLERGY [None]
  - ERYTHEMA OF EYELID [None]
  - DELIRIUM [None]
  - ODYNOPHAGIA [None]
  - EYE SWELLING [None]
  - MASTICATION DISORDER [None]
  - SWELLING FACE [None]
  - DIARRHOEA [None]
  - HALLUCINATION, VISUAL [None]
  - PNEUMONIA [None]
  - IMMUNODEFICIENCY [None]
  - ERYTHEMA [None]
  - MOUTH INJURY [None]
  - DEATH [None]
  - TUMOUR PAIN [None]
  - COGNITIVE DISORDER [None]
  - YELLOW SKIN [None]
  - SKIN EXFOLIATION [None]
